FAERS Safety Report 6739617-8 (Version None)
Quarter: 2010Q2

REPORT INFORMATION
  Report Type: 
  Country: None (occurrence: None)
  Receive Date: 20100525
  Receipt Date: 20100517
  Transmission Date: 20101027
  Serious: Yes (Death, Hospitalization)
  Sender: FDA-Public Use
  Company Number: FR-ROCHE-691222

PATIENT
  Sex: Female

DRUGS (3)
  1. HERCEPTIN [Suspect]
     Route: 042
     Dates: start: 20090416, end: 20090723
  2. HERCEPTIN [Suspect]
     Route: 042
     Dates: start: 20090723, end: 20100105
  3. TAXOL [Concomitant]
     Indication: BREAST CANCER
     Route: 042
     Dates: start: 20090505, end: 20091124

REACTIONS (2)
  - CARDIAC FAILURE CONGESTIVE [None]
  - EJECTION FRACTION DECREASED [None]
